FAERS Safety Report 25790535 (Version 1)
Quarter: 2025Q3

REPORT INFORMATION
  Report Type: Other
  Country: IR (occurrence: IR)
  Receive Date: 20250911
  Receipt Date: 20250911
  Transmission Date: 20251020
  Serious: Yes (Congenital Anomaly, Other)
  Sender: APPCO PHARMA LLC
  Company Number: IR-Appco Pharma LLC-2184279

PATIENT

DRUGS (1)
  1. SERTRALINE [Suspect]
     Active Substance: SERTRALINE HYDROCHLORIDE
     Indication: Product used for unknown indication

REACTIONS (2)
  - Ductus arteriosus premature closure [Recovered/Resolved]
  - Foetal exposure during pregnancy [Unknown]
